FAERS Safety Report 21691427 (Version 1)
Quarter: 2022Q4

REPORT INFORMATION
  Report Type: Spontaneous
  Country: US (occurrence: US)
  Receive Date: 20221207
  Receipt Date: 20221207
  Transmission Date: 20230113
  Serious: Yes (Other)
  Sender: FDA-Public Use
  Company Number: US-AMGEN-USASP2022207621

PATIENT
  Age: 54 Year
  Sex: Male

DRUGS (2)
  1. PROLIA [Suspect]
     Active Substance: DENOSUMAB
     Indication: Hypercalcaemia
     Dosage: 60 MILLIGRAM
     Route: 058
  2. PROLIA [Suspect]
     Active Substance: DENOSUMAB
     Dosage: 60 MILLIGRAM
     Route: 058

REACTIONS (5)
  - Sepsis [Unknown]
  - Drug effective for unapproved indication [Unknown]
  - Nervous system disorder [Unknown]
  - Hypercalcaemia [Recovering/Resolving]
  - Off label use [Unknown]
